FAERS Safety Report 6923162-0 (Version None)
Quarter: 2010Q3

REPORT INFORMATION
  Report Type: 
  Country: None (occurrence: None)
  Receive Date: 20100813
  Receipt Date: 20100805
  Transmission Date: 20110219
  Serious: Yes (Death, Hospitalization)
  Sender: FDA-Public Use
  Company Number: DE-ROCHE-677948

PATIENT
  Sex: Male
  Weight: 57 kg

DRUGS (1)
  1. CAPECITABINE [Suspect]
     Indication: RECTAL CANCER
     Dosage: FREQUENCY: BID D1-33 W/O WEEKEND + OPTIONAL, LAST DOSE PRIOR TO SAE: 3000 MG ON 23 DECEMBER 2009.
     Route: 048
     Dates: start: 20090116

REACTIONS (1)
  - DUODENAL ULCER PERFORATION [None]
